FAERS Safety Report 22033917 (Version 7)
Quarter: 2023Q2

REPORT INFORMATION
  Report Type: Report from Study
  Country: RU (occurrence: RU)
  Receive Date: 20230224
  Receipt Date: 20230504
  Transmission Date: 20230721
  Serious: Yes (Hospitalization, Other)
  Sender: FDA-Public Use
  Company Number: RU-PFIZER INC-PV202300029281

PATIENT
  Age: 69 Year
  Sex: Male

DRUGS (10)
  1. PF-06821497 [Suspect]
     Active Substance: PF-06821497
     Indication: Hormone-refractory prostate cancer
     Route: 048
     Dates: start: 20200323, end: 20220722
  2. ENZALUTAMIDE [Suspect]
     Active Substance: ENZALUTAMIDE
     Indication: Hormone-refractory prostate cancer
     Route: 048
     Dates: start: 20200323, end: 20230115
  3. INDAPAMIDE [Concomitant]
     Active Substance: INDAPAMIDE
     Indication: Myocardial ischaemia
     Route: 048
     Dates: start: 2019
  4. INDAPAMIDE [Concomitant]
     Active Substance: INDAPAMIDE
     Indication: Hypertension
  5. LOSARTAN POTASSIUM [Concomitant]
     Active Substance: LOSARTAN POTASSIUM
     Indication: Myocardial ischaemia
     Route: 048
     Dates: start: 2019
  6. LOSARTAN POTASSIUM [Concomitant]
     Active Substance: LOSARTAN POTASSIUM
     Indication: Hypertension
  7. SPIRONOLACTONE [Concomitant]
     Active Substance: SPIRONOLACTONE
     Indication: Myocardial ischaemia
     Route: 048
     Dates: start: 2019
  8. SPIRONOLACTONE [Concomitant]
     Active Substance: SPIRONOLACTONE
     Indication: Hypertension
  9. ATORVASTATIN [Concomitant]
     Active Substance: ATORVASTATIN
     Indication: Myocardial ischaemia
     Route: 048
     Dates: start: 2019
  10. METFORMIN [Concomitant]
     Active Substance: METFORMIN HYDROCHLORIDE
     Indication: Type 2 diabetes mellitus
     Route: 048
     Dates: start: 2018

REACTIONS (4)
  - Second primary malignancy [Recovered/Resolved with Sequelae]
  - Myelodysplastic syndrome with excess blasts [Recovered/Resolved with Sequelae]
  - Second primary malignancy [Recovered/Resolved with Sequelae]
  - Myelodysplastic syndrome with excess blasts [Recovered/Resolved with Sequelae]

NARRATIVE: CASE EVENT DATE: 20230125
